FAERS Safety Report 6582280-X (Version None)
Quarter: 2010Q1

REPORT INFORMATION
  Report Type: 
  Country: None (occurrence: None)
  Receive Date: 20100212
  Receipt Date: 20100212
  Transmission Date: 20100710
  Serious: No
  Sender: FDA-Public Use
  Company Number: None

PATIENT
  Age: 31 Year
  Sex: Female
  Weight: 101.1 kg

DRUGS (1)
  1. OXYCODONE AND ACETAMINOPHEN [Suspect]
     Indication: PAIN
     Dosage: 1-2 TAB OTHER PO
     Route: 048
     Dates: start: 20091102, end: 20091103

REACTIONS (3)
  - PRURITUS [None]
  - RASH [None]
  - URTICARIA [None]
